FAERS Safety Report 23234421 (Version 1)
Quarter: 2023Q4

REPORT INFORMATION
  Report Type: Spontaneous
  Country: US (occurrence: US)
  Receive Date: 20231128
  Receipt Date: 20231128
  Transmission Date: 20240110
  Serious: No
  Sender: FDA-Public Use
  Company Number: US-SA-SAC20231121000252

PATIENT
  Age: 1 Year
  Sex: Male

DRUGS (2)
  1. XENPOZYME [Suspect]
     Active Substance: OLIPUDASE ALFA-RPCP
     Indication: Niemann-Pick disease
     Dosage: 3 MG/KG
     Route: 041
  2. XENPOZYME [Suspect]
     Active Substance: OLIPUDASE ALFA-RPCP
     Dosage: 1 MG/KG
     Route: 041

REACTIONS (2)
  - Drug intolerance [Not Recovered/Not Resolved]
  - Incorrect dose administered [Unknown]
